FAERS Safety Report 15427583 (Version 1)
Quarter: 2018Q3

REPORT INFORMATION
  Report Type: Spontaneous
  Country: US (occurrence: US)
  Receive Date: 20180925
  Receipt Date: 20180925
  Transmission Date: 20181010
  Serious: Yes (Life-Threatening, Hospitalization, Other)
  Sender: FDA-Public Use
  Company Number: US-009507513-1809USA008409

PATIENT
  Sex: Male

DRUGS (18)
  1. NOXAFIL [Suspect]
     Active Substance: POSACONAZOLE
     Indication: ASPERGILLUS INFECTION
     Dosage: 200 MG (5 ML) BY MOUTH THREE TIMES DAILY
     Route: 048
     Dates: end: 2018
  2. ROZEREM [Concomitant]
     Active Substance: RAMELTEON
  3. DARBEPOETIN ALFA [Concomitant]
     Active Substance: DARBEPOETIN ALFA
  4. OMEPRAZOLE. [Interacting]
     Active Substance: OMEPRAZOLE
  5. DOXAZOSIN [Concomitant]
     Active Substance: DOXAZOSIN\DOXAZOSIN MESYLATE
  6. VITAMINS (UNSPECIFIED) [Concomitant]
     Active Substance: VITAMINS
  7. PRAVASTATIN. [Concomitant]
     Active Substance: PRAVASTATIN
  8. LEVOTHYROXINE SODIUM. [Concomitant]
     Active Substance: LEVOTHYROXINE SODIUM
  9. SUCROFERRIC OXYHYDROXIDE [Concomitant]
     Active Substance: FERRIC OXYHYDROXIDE
  10. CHOLECALCIFEROL [Concomitant]
     Active Substance: CHOLECALCIFEROL
  11. NOXAFIL [Interacting]
     Active Substance: POSACONAZOLE
     Dosage: 400 MG THREE TIMES DAILY
     Route: 048
     Dates: start: 2018
  12. PREDNISONE. [Concomitant]
     Active Substance: PREDNISONE
  13. CALCIUM ACETATE. [Concomitant]
     Active Substance: CALCIUM ACETATE
  14. DAPSONE. [Concomitant]
     Active Substance: DAPSONE
  15. VORICONAZOLE. [Concomitant]
     Active Substance: VORICONAZOLE
  16. METOPROLOL. [Concomitant]
     Active Substance: METOPROLOL
  17. CARBONYL IRON [Concomitant]
     Active Substance: IRON
  18. AVODART [Concomitant]
     Active Substance: DUTASTERIDE

REACTIONS (6)
  - Respiratory failure [Recovered/Resolved]
  - Drug interaction [Not Recovered/Not Resolved]
  - Therapeutic response unexpected [Unknown]
  - Drug level below therapeutic [Not Recovered/Not Resolved]
  - Pulmonary alveolar haemorrhage [Not Recovered/Not Resolved]
  - Pulmonary thrombosis [Not Recovered/Not Resolved]

NARRATIVE: CASE EVENT DATE: 2018
